FAERS Safety Report 5746737-3 (Version None)
Quarter: 2008Q2

REPORT INFORMATION
  Report Type: 
  Country: None (occurrence: None)
  Receive Date: 20080522
  Receipt Date: 20080515
  Transmission Date: 20081010
  Serious: Yes (Death)
  Sender: FDA-Public Use
  Company Number: US-BAXTER-2008BH005150

PATIENT
  Age: 6 Year
  Sex: Male
  Weight: 17 kg

DRUGS (4)
  1. HEPARIN SODIUM [Suspect]
     Indication: CORONARY ARTERY BYPASS
     Dosage: DOSE UNIT:UNKNOWN
     Route: 065
     Dates: start: 20060101
  2. HEPARIN SODIUM [Suspect]
     Indication: EXTRACORPOREAL MEMBRANE OXYGENATION
     Dosage: DOSE UNIT:UNKNOWN
     Route: 065
     Dates: start: 20060101
  3. HEPARIN SODIUM [Suspect]
     Indication: PROPHYLAXIS
     Dosage: DOSE UNIT:UNKNOWN
     Route: 065
     Dates: start: 20060101
  4. MULTIPLE MEDICATIONS [Concomitant]
     Indication: DRUG USE FOR UNKNOWN INDICATION
     Dosage: DOSE UNIT:UNKNOWN
     Route: 065

REACTIONS (1)
  - DEATH [None]
